FAERS Safety Report 12707274 (Version 5)
Quarter: 2016Q4

REPORT INFORMATION
  Report Type: Spontaneous
  Country: US (occurrence: US)
  Receive Date: 20160901
  Receipt Date: 20161205
  Transmission Date: 20170207
  Serious: Yes (Hospitalization)
  Sender: FDA-Public Use
  Company Number: US-PFIZER INC-2015243264

PATIENT
  Age: 69 Year
  Sex: Female
  Weight: 54.43 kg

DRUGS (27)
  1. LEVOTHYROXINE. [Concomitant]
     Active Substance: LEVOTHYROXINE
     Dosage: 125 UG, DAILY (BEFORE BREAKFAST)
     Route: 048
  2. HYDROCORTISONE-PRAMOXINE [Concomitant]
     Dosage: UNK, 2X/DAY (INSERT 1 APPLICATION)
     Route: 054
  3. VFEND [Suspect]
     Active Substance: VORICONAZOLE
     Indication: SPLENIC INFECTION FUNGAL
  4. ACYCLOVIR /00587301/ [Concomitant]
     Active Substance: ACYCLOVIR
     Indication: HERPES ZOSTER
     Dosage: 800 MG, 2X/DAY (EVERY 12 HOURS)
     Route: 048
  5. ZYVOX [Concomitant]
     Active Substance: LINEZOLID
     Dosage: 600 MG, 2X/DAY
     Route: 048
     Dates: start: 20150804, end: 20150805
  6. HYDROCORTISONE. [Concomitant]
     Active Substance: HYDROCORTISONE
     Dosage: UNK, 2X/DAY (INSERT 1 APPLICATION INTO THE RECTUM EVERY 12 HOURS)
     Route: 054
  7. VFEND [Suspect]
     Active Substance: VORICONAZOLE
     Indication: HEPATIC INFECTION FUNGAL
  8. VFEND [Suspect]
     Active Substance: VORICONAZOLE
     Indication: PULMONARY MYCOSIS
     Dosage: 200 MG, 2X/DAY
     Route: 048
     Dates: start: 201409
  9. BACTRIM DS [Concomitant]
     Active Substance: SULFAMETHOXAZOLE\TRIMETHOPRIM
     Dosage: UNK, ALTERNATE DAY (1 CAP(S) ORALLY MONDAY, WEDNESDAY AND FRIDAY)
     Route: 048
  10. SYNTHROID [Concomitant]
     Active Substance: LEVOTHYROXINE SODIUM
     Indication: THYROID CANCER
  11. FLUTICASONE [Concomitant]
     Active Substance: FLUTICASONE\FLUTICASONE PROPIONATE
     Indication: SINUSITIS
     Dosage: 50 UG, 1X/DAY
     Route: 045
  12. MONUROL [Concomitant]
     Active Substance: FOSFOMYCIN TROMETHAMINE
     Dosage: UNK
     Route: 048
  13. PULMICORT TURBUHALER [Concomitant]
     Active Substance: BUDESONIDE
     Dosage: 2 ML, 2X/DAY (AS DIRECTED) (0.5 MG/2 ML)
     Route: 055
  14. FUROSEMIDE. [Concomitant]
     Active Substance: FUROSEMIDE
     Dosage: 40 MG, DAILY
     Route: 048
  15. ACYCLOVIR /00587301/ [Concomitant]
     Active Substance: ACYCLOVIR
     Indication: VIRAL INFECTION
     Dosage: 800 MG, 2X/DAY
     Route: 048
     Dates: start: 201412
  16. LEVOTHYROXINE. [Concomitant]
     Active Substance: LEVOTHYROXINE
     Dosage: 0.175 MG, 1X/DAY
     Route: 048
  17. LASIX [Concomitant]
     Active Substance: FUROSEMIDE
     Indication: CARDIAC FAILURE CONGESTIVE
     Dosage: UNK, 2X/DAY
     Dates: start: 201606
  18. FLUDROCORTISONE [Concomitant]
     Active Substance: FLUDROCORTISONE
     Indication: ORTHOSTATIC HYPOTENSION
     Dosage: 0.1 MG, 2X/DAY
     Route: 048
  19. FLONASE [Concomitant]
     Active Substance: FLUTICASONE PROPIONATE
     Dosage: 2 DF, DAILY
     Route: 045
  20. PROBIOTICS [Concomitant]
     Active Substance: PROBIOTICS NOS
     Dosage: 2 DF, DAILY
     Route: 048
  21. TEMAZEPAM. [Concomitant]
     Active Substance: TEMAZEPAM
     Indication: INSOMNIA
     Dosage: 15 MG, AS NEEDED (DAILY AT BEDTIME)
     Route: 048
  22. ALLEGRA [Concomitant]
     Active Substance: FEXOFENADINE HYDROCHLORIDE
     Dosage: 60 MG, 1X/DAY
     Route: 048
  23. SYNTHROID [Concomitant]
     Active Substance: LEVOTHYROXINE SODIUM
     Indication: THYROID OPERATION
     Dosage: 100 UG, 1X/DAY
     Route: 048
     Dates: start: 2004
  24. FLUDROCORTISONE [Concomitant]
     Active Substance: FLUDROCORTISONE
     Indication: BLOOD PRESSURE ABNORMAL
     Dosage: 1 DF, 2X/DAY
     Route: 048
     Dates: start: 2016
  25. BIOTIN [Concomitant]
     Active Substance: BIOTIN
     Dosage: 1500 UG, 2X/DAY
     Route: 048
  26. LISINOPRIL. [Concomitant]
     Active Substance: LISINOPRIL
     Dosage: UNK, DAILY
     Route: 048
  27. ASP2215 [Concomitant]
     Active Substance: GILTERITINIB
     Dosage: 200 MG, DAILY
     Route: 048

REACTIONS (5)
  - Hypotension [Not Recovered/Not Resolved]
  - Leukaemia recurrent [Unknown]
  - Hepatic lesion [Not Recovered/Not Resolved]
  - Urinary tract infection [Not Recovered/Not Resolved]
  - Malaise [Unknown]

NARRATIVE: CASE EVENT DATE: 20160827
